FAERS Safety Report 7774194-4 (Version None)
Quarter: 2011Q3

REPORT INFORMATION
  Report Type: 
  Country: None (occurrence: None)
  Receive Date: 20110923
  Receipt Date: 20110916
  Transmission Date: 20111222
  Serious: Yes (Hospitalization, Other)
  Sender: FDA-Public Use
  Company Number: BE-UCBSA-041489

PATIENT
  Age: 42 Year
  Sex: Male

DRUGS (4)
  1. TOPAMAX [Concomitant]
     Dosage: 2 X 50 MG
  2. DUSPATALIN [Concomitant]
  3. KEPPRA [Suspect]
  4. VIMPAT [Suspect]
     Dates: start: 20110801

REACTIONS (3)
  - TOXIC ENCEPHALOPATHY [None]
  - WEIGHT DECREASED [None]
  - ASTHENIA [None]
